FAERS Safety Report 5141062-6 (Version None)
Quarter: 2006Q4

REPORT INFORMATION
  Report Type: 
  Country: None (occurrence: None)
  Receive Date: 20061026
  Receipt Date: 20061013
  Transmission Date: 20070319
  Serious: Yes (Other)
  Sender: FDA-Public Use
  Company Number: 2006079887

PATIENT
  Age: 44 Year
  Sex: Male

DRUGS (4)
  1. DILANTIN [Suspect]
     Indication: PARTIAL SEIZURES
     Dosage: 100 MG
     Dates: start: 19860101, end: 20060701
  2. TEGRETOL [Concomitant]
  3. VALPROIC ACID [Concomitant]
  4. ZYPREXA [Concomitant]

REACTIONS (5)
  - BRAIN DAMAGE [None]
  - DRUG HYPERSENSITIVITY [None]
  - GINGIVAL DISORDER [None]
  - TOOTH DISORDER [None]
  - VOMITING [None]
